APPROVED DRUG PRODUCT: NOVAMINE 15%
Active Ingredient: AMINO ACIDS
Strength: 15% (75GM/500ML)
Dosage Form/Route: INJECTABLE;INJECTION
Application: N017957 | Product #004
Applicant: HOSPIRA INC
Approved: Nov 28, 1986 | RLD: No | RS: No | Type: DISCN